FAERS Safety Report 6358569-6 (Version None)
Quarter: 2009Q3

REPORT INFORMATION
  Report Type: 
  Country: None (occurrence: None)
  Receive Date: 20090914
  Receipt Date: 20090831
  Transmission Date: 20100115
  Serious: Yes (Other)
  Sender: FDA-Public Use
  Company Number: 2009-01031

PATIENT
  Sex: Female
  Weight: 62.1 kg

DRUGS (7)
  1. VELCADE [Suspect]
     Indication: MANTLE CELL LYMPHOMA
     Dosage: 1.3 MG/M2, IV BOLUS
     Route: 040
     Dates: start: 20080124, end: 20080216
  2. CYCLOPHOSPHAMIDE [Suspect]
     Indication: MANTLE CELL LYMPHOMA
     Dosage: 300 MG/M2; INTRAVENOUS
     Route: 042
     Dates: start: 20080124, end: 20080216
  3. DOXORUBICIN HCL [Suspect]
     Indication: MANTLE CELL LYMPHOMA
     Dosage: 25 MG/M2, INTRAVENOUS
     Route: 042
     Dates: start: 20080124, end: 20080215
  4. RITUXIMAB(RITUXIMAB) INJECTION [Suspect]
     Indication: MANTLE CELL LYMPHOMA
     Dosage: 375 MG/M2; INTRAVENOUS
     Route: 042
     Dates: start: 20080124, end: 20080213
  5. VINCRISTINE [Suspect]
     Indication: MANTLE CELL LYMPHOMA
     Dosage: 1 MG, IV BOLUS
     Route: 040
     Dates: start: 20080124, end: 20080215
  6. DEXAMETHASONE [Suspect]
     Indication: MANTLE CELL LYMPHOMA
     Dosage: 40 MG,
     Dates: start: 20080124, end: 20080215
  7. NEULASTA [Suspect]
     Indication: MANTLE CELL LYMPHOMA
     Dosage: 6 MG, SUBCUTANEOUS
     Route: 058
     Dates: start: 20080124, end: 20080218

REACTIONS (5)
  - ALOPECIA [None]
  - HAEMATOCRIT DECREASED [None]
  - HAEMOGLOBIN DECREASED [None]
  - LYMPHOPENIA [None]
  - MUSCULAR WEAKNESS [None]
